FAERS Safety Report 9813809 (Version 1)
Quarter: 2014Q1

REPORT INFORMATION
  Report Type: Spontaneous
  Country: US (occurrence: None)
  Receive Date: 20140109
  Receipt Date: 20140109
  Transmission Date: 20141002
  Serious: Yes (Hospitalization)
  Sender: FDA-Public Use
  Company Number: None

PATIENT
  Age: 74 Year
  Sex: Female

DRUGS (1)
  1. HALAVEN [Suspect]
     Indication: CERVIX CARCINOMA
     Dosage: DL/D8 Q 21 DY. CYC
     Dates: start: 20130507, end: 20131216

REACTIONS (6)
  - Viral upper respiratory tract infection [None]
  - Atelectasis [None]
  - Febrile neutropenia [None]
  - Urinary tract infection enterococcal [None]
  - Anaemia [None]
  - Rectal haemorrhage [None]
